FAERS Safety Report 5429329-5 (Version None)
Quarter: 2007Q3

REPORT INFORMATION
  Report Type: 
  Country: None (occurrence: None)
  Receive Date: 20070827
  Receipt Date: 20070810
  Transmission Date: 20080115
  Serious: Yes (Other)
  Sender: FDA-Public Use
  Company Number: 2007US-09292

PATIENT
  Age: 81 Year
  Sex: Male

DRUGS (10)
  1. ISOPTIN SR [Suspect]
     Indication: DRUG USE FOR UNKNOWN INDICATION
  2. WARFRAIN (WARFARIN SODIUM) [Suspect]
     Indication: ATRIAL FIBRILLATION
  3. ALLOPURINOL [Suspect]
     Indication: DRUG USE FOR UNKNOWN INDICATION
  4. CIPRAMIL (CITALOPRAM HYDROBROMIDE) SPRAY (EXCEPT INHALATION) [Suspect]
     Indication: DRUG USE FOR UNKNOWN INDICATION
  5. DETRUSITOL UNKNOWN [Suspect]
     Indication: DRUG USE FOR UNKNOWN INDICATION
  6. HEMINEVRIN (CLOMETHIAZOLE EDISILATE) UNKNOWN [Suspect]
     Indication: DRUG USE FOR UNKNOWN INDICATION
  7. LAKTIPEX (LACTULOSE) UNKNOWN [Suspect]
     Indication: DRUG USE FOR UNKNOWN INDICATION
  8. OPTIMAL UNKNOWN [Suspect]
     Indication: DRUG USE FOR UNKNOWN INDICATION
  9. PANDIL (PARACETAMOL) UNKNOWN [Suspect]
     Indication: DRUG USE FOR UNKNOWN INDICATION
  10. MIKROLAX KLYSMA UNKNOWN [Suspect]
     Indication: DRUG USE FOR UNKNOWN INDICATION

REACTIONS (2)
  - CEREBRAL HAEMORRHAGE [None]
  - DRUG INTERACTION [None]
